APPROVED DRUG PRODUCT: NEXAVAR
Active Ingredient: SORAFENIB TOSYLATE
Strength: EQ 200MG BASE
Dosage Form/Route: TABLET;ORAL
Application: N021923 | Product #001 | TE Code: AB
Applicant: BAYER HEALTHCARE PHARMACEUTICALS INC
Approved: Dec 20, 2005 | RLD: Yes | RS: Yes | Type: RX

PATENTS:
Patent 8877933 | Expires: Dec 24, 2027
Patent 9737488 | Expires: Sep 10, 2028
Patent 9737488 | Expires: Sep 10, 2028
Patent 9737488 | Expires: Sep 10, 2028